FAERS Safety Report 5956988-0 (Version None)
Quarter: 2008Q4

REPORT INFORMATION
  Report Type: 
  Country: None (occurrence: None)
  Receive Date: 20081118
  Receipt Date: 20080728
  Transmission Date: 20090506
  Serious: No
  Sender: FDA-Public Use
  Company Number: A0738193A

PATIENT
  Age: 51 Year
  Sex: Male

DRUGS (2)
  1. COREG CR [Suspect]
     Indication: HYPERTENSION
     Dosage: 20MG PER DAY
     Route: 048
  2. ASPIRIN [Concomitant]

REACTIONS (3)
  - DIZZINESS POSTURAL [None]
  - ELECTROCARDIOGRAM T WAVE ABNORMAL [None]
  - ORTHOSTATIC HYPOTENSION [None]
